FAERS Safety Report 4537640-5 (Version None)
Quarter: 2004Q4

REPORT INFORMATION
  Report Type: 
  Country: None (occurrence: None)
  Receive Date: 20041223
  Receipt Date: 20041214
  Transmission Date: 20050328
  Serious: Yes (Hospitalization)
  Sender: FDA-Public Use
  Company Number: US-MERCK-0412USA02123

PATIENT
  Age: 65 Year
  Sex: Male

DRUGS (1)
  1. VIOXX [Suspect]
     Indication: ARTHRALGIA
     Route: 048
     Dates: start: 20000501, end: 20040601

REACTIONS (8)
  - AORTIC DILATATION [None]
  - FATIGUE [None]
  - INSOMNIA [None]
  - LETHARGY [None]
  - MYOCARDIAL INFARCTION [None]
  - STRESS SYMPTOMS [None]
  - TRICUSPID VALVE INCOMPETENCE [None]
  - VENTRICULAR HYPERTROPHY [None]
